FAERS Safety Report 25220077 (Version 1)
Quarter: 2025Q2

REPORT INFORMATION
  Report Type: Spontaneous
  Country: CN (occurrence: CN)
  Receive Date: 20250421
  Receipt Date: 20250421
  Transmission Date: 20250716
  Serious: Yes (Other)
  Sender: COHERUS
  Company Number: CN-SHANGHAI JUNSHI BIOSCIENCES CO., LTD.-CN2025013813

PATIENT

DRUGS (8)
  1. TORIPALIMAB [Suspect]
     Active Substance: TORIPALIMAB
     Indication: Small cell lung cancer
     Route: 041
     Dates: start: 20250403, end: 20250403
  2. ETOPOSIDE [Suspect]
     Active Substance: ETOPOSIDE
     Indication: Small cell lung cancer
     Dosage: 100 MG (D1-D3, QD)
     Route: 041
     Dates: start: 20250403, end: 20250405
  3. ETOPOSIDE [Suspect]
     Active Substance: ETOPOSIDE
     Dosage: 60 MG (D1-D3, QD)
     Route: 041
     Dates: start: 20250403, end: 20250405
  4. CISPLATIN [Suspect]
     Active Substance: CISPLATIN
     Indication: Small cell lung cancer
     Dosage: 40 MG (D1-D3, QD)
     Route: 041
     Dates: start: 20250403, end: 20250405
  5. SODIUM CHLORIDE [Concomitant]
     Active Substance: SODIUM CHLORIDE
     Indication: Medication dilution
     Route: 041
     Dates: start: 20250403, end: 20250403
  6. SODIUM CHLORIDE [Concomitant]
     Active Substance: SODIUM CHLORIDE
     Indication: Medication dilution
     Dosage: 500 ML (D1-D3, QD)
     Route: 041
     Dates: start: 20250403, end: 20250405
  7. SODIUM CHLORIDE [Concomitant]
     Active Substance: SODIUM CHLORIDE
     Indication: Medication dilution
     Dosage: 250 ML (D1-D3, QD)
     Route: 041
     Dates: start: 20250403, end: 20250405
  8. SODIUM CHLORIDE [Concomitant]
     Active Substance: SODIUM CHLORIDE
     Dosage: 250 ML (D1-D3, QD)
     Route: 041
     Dates: start: 20250403, end: 20250405

REACTIONS (1)
  - Myelosuppression [Recovering/Resolving]

NARRATIVE: CASE EVENT DATE: 20250410
